FAERS Safety Report 17811412 (Version 3)
Quarter: 2020Q3

REPORT INFORMATION
  Report Type: Spontaneous
  Country: US (occurrence: US)
  Receive Date: 20200521
  Receipt Date: 20200706
  Transmission Date: 20201102
  Serious: No
  Sender: FDA-Public Use
  Company Number: US-PFIZER INC-2020197820

PATIENT
  Age: 62 Year
  Sex: Male
  Weight: 97.52 kg

DRUGS (4)
  1. IBRANCE [Suspect]
     Active Substance: PALBOCICLIB
     Indication: BREAST CANCER
     Dosage: 125 MG, CYCLIC(TAKE ONE DAILY BY MOUTH FOR 3 WEEKS THEN OFF FOR A WEEK)
     Route: 048
     Dates: start: 202003
  2. CYCLOVIR [Concomitant]
     Indication: CONGENITAL HERPES SIMPLEX INFECTION
     Dosage: 400 MG, DAILY
     Route: 048
  3. TAMOXIFEN [Concomitant]
     Active Substance: TAMOXIFEN
     Dosage: UNK
     Dates: end: 202003
  4. ANASTROZOLE. [Concomitant]
     Active Substance: ANASTROZOLE
     Indication: BREAST CANCER METASTATIC
     Dosage: 1 MG, DAILY
     Route: 048
     Dates: start: 202003

REACTIONS (3)
  - Tumour marker increased [Not Recovered/Not Resolved]
  - Dyspnoea [Unknown]
  - Fatigue [Unknown]

NARRATIVE: CASE EVENT DATE: 2020
